FAERS Safety Report 9444189 (Version 1)
Quarter: 2013Q3

REPORT INFORMATION
  Report Type: Spontaneous
  Country: US (occurrence: None)
  Receive Date: 20130731
  Receipt Date: 20130731
  Transmission Date: 20140515
  Serious: Yes (Other)
  Sender: FDA-Public Use
  Company Number: 2013037083

PATIENT
  Age: 13 Year
  Sex: Female

DRUGS (1)
  1. BERINERT-P [Suspect]
     Indication: HEREDITARY ANGIOEDEMA
     Route: 042
     Dates: start: 20130719, end: 20130719

REACTIONS (2)
  - Swollen tongue [None]
  - Tongue discolouration [None]
